FAERS Safety Report 9283589 (Version 1)
Quarter: 2013Q2

REPORT INFORMATION
  Report Type: Spontaneous
  Country: FR (occurrence: None)
  Receive Date: 20130426
  Receipt Date: 20130426
  Transmission Date: 20140414
  Serious: Yes (Other)
  Sender: FDA-Public Use
  Company Number: 2013035664

PATIENT
  Age: 14 Year
  Sex: Male

DRUGS (1)
  1. HIZENTRA [Suspect]
     Indication: PRIMARY IMMUNODEFICIENCY SYNDROME
     Route: 058
     Dates: start: 20130116

REACTIONS (1)
  - Injection site abscess [None]
